FAERS Safety Report 10694049 (Version 3)
Quarter: 2015Q1

REPORT INFORMATION
  Report Type: Spontaneous
  Country: US (occurrence: US)
  Receive Date: 20150106
  Receipt Date: 20150327
  Transmission Date: 20150721
  Serious: Yes (Death, Other)
  Sender: FDA-Public Use
  Company Number: US-GLAXOSMITHKLINE-US2015GSK000572

PATIENT
  Age: 68 Year
  Sex: Female

DRUGS (3)
  1. FLOLAN [Suspect]
     Active Substance: EPOPROSTENOL SODIUM
     Dosage: 37 NG/KG/MIN, CONCENTRATION 30,000 NG/ML, PUMP RATE 87 ML/DAY, VIAL STRENGTH 1.5 MG, CO
     Route: 042
     Dates: start: 19990608
  2. WARFARIN [Concomitant]
     Active Substance: WARFARIN
  3. FLOLAN [Suspect]
     Active Substance: EPOPROSTENOL SODIUM
     Indication: PULMONARY ARTERIAL HYPERTENSION
     Dosage: 37 NG/KG/MIN, CONCENTRATION 30,000 NG/ML, PUMP RATE 87 ML/DAY, VIAL STRENGTH 1.5 MG, CO
     Route: 042
     Dates: start: 19990608

REACTIONS (4)
  - Cataract operation [Unknown]
  - Death [Fatal]
  - Erythema [Unknown]
  - Cataract [Unknown]

NARRATIVE: CASE EVENT DATE: 2015
